FAERS Safety Report 5867125-5 (Version None)
Quarter: 2008Q3

REPORT INFORMATION
  Report Type: 
  Country: None (occurrence: None)
  Receive Date: 20080828
  Receipt Date: 20080828
  Transmission Date: 20090109
  Serious: Yes (Other)
  Sender: FDA-Public Use
  Company Number: None

PATIENT
  Age: 4 Year
  Sex: Male
  Weight: 16.7831 kg

DRUGS (1)
  1. SINGULAIR [Suspect]
     Indication: ASTHMA
     Dosage: 1 CHEWABLE TABLET BEFORE BED PO
     Route: 048
     Dates: start: 20080723, end: 20080825

REACTIONS (15)
  - ABDOMINAL PAIN UPPER [None]
  - ABNORMAL BEHAVIOUR [None]
  - AGGRESSION [None]
  - ANGER [None]
  - COUGH [None]
  - CRYING [None]
  - DYSPHONIA [None]
  - EYE SWELLING [None]
  - FATIGUE [None]
  - FIGHT IN SCHOOL [None]
  - HEADACHE [None]
  - MOOD ALTERED [None]
  - NASAL CONGESTION [None]
  - SOMNOLENCE [None]
  - VOMITING [None]
